FAERS Safety Report 5141569-1 (Version None)
Quarter: 2006Q4

REPORT INFORMATION
  Report Type: 
  Country: None (occurrence: None)
  Receive Date: 20061030
  Receipt Date: 20061030
  Transmission Date: 20070319
  Serious: Yes (Hospitalization)
  Sender: FDA-Public Use
  Company Number: None

PATIENT
  Age: 35 Year
  Sex: Male
  Weight: 70.7 kg

DRUGS (1)
  1. TENOFOVIR 300 MG [Suspect]
     Indication: HIV INFECTION
     Dosage: UNKNOWN PO
     Route: 048

REACTIONS (2)
  - CHOLESTASIS [None]
  - PYREXIA [None]
